FAERS Safety Report 21830432 (Version 1)
Quarter: 2023Q1

REPORT INFORMATION
  Report Type: Spontaneous
  Country: US (occurrence: None)
  Receive Date: 20230105
  Receipt Date: 20230105
  Transmission Date: 20230417
  Serious: Yes (Hospitalization)
  Sender: FDA-Public Use
  Company Number: None

PATIENT
  Sex: Female

DRUGS (3)
  1. ALECENSA [Suspect]
     Active Substance: ALECTINIB HYDROCHLORIDE
     Indication: Lung carcinoma cell type unspecified stage 0
     Dosage: 150 MG ORAL??TAKE 3 CAPSULES BY MOUTH TWICE DAILY
     Route: 048
     Dates: start: 20180914
  2. METOPROL SUC [Concomitant]
  3. XGEVA [Concomitant]
     Active Substance: DENOSUMAB

REACTIONS (2)
  - Hospitalisation [None]
  - Therapy interrupted [None]
